FAERS Safety Report 25604692 (Version 1)
Quarter: 2025Q3

REPORT INFORMATION
  Report Type: Spontaneous
  Country: US (occurrence: US)
  Receive Date: 20250725
  Receipt Date: 20250725
  Transmission Date: 20251021
  Serious: No
  Sender: LEO PHARM
  Company Number: US-LEO Pharma-381609

PATIENT
  Age: 28 Year
  Sex: Male

DRUGS (1)
  1. ADBRY [Suspect]
     Active Substance: TRALOKINUMAB-LDRM
     Indication: Dermatitis
     Dosage: TREATMENT IS ONGOING
     Dates: start: 202504

REACTIONS (2)
  - Dermatitis [Unknown]
  - Eye pruritus [Unknown]
